FAERS Safety Report 23624427 (Version 3)
Quarter: 2024Q2

REPORT INFORMATION
  Report Type: Spontaneous
  Country: US (occurrence: US)
  Receive Date: 20240312
  Receipt Date: 20240610
  Transmission Date: 20240716
  Serious: No
  Sender: FDA-Public Use
  Company Number: US-Calliditas-2024CAL00371

PATIENT
  Age: 58 Year
  Sex: Male

DRUGS (1)
  1. TARPEYO [Suspect]
     Active Substance: BUDESONIDE
     Indication: IgA nephropathy
     Dosage: 16 MG (4 MG CAPSULES) TAKEN ONCE DAILY
     Route: 048
     Dates: start: 20240218, end: 20240528

REACTIONS (8)
  - Fatigue [Unknown]
  - Mood swings [Not Recovered/Not Resolved]
  - Dizziness postural [Not Recovered/Not Resolved]
  - Muscle spasms [Not Recovered/Not Resolved]
  - Blood pressure increased [Recovering/Resolving]
  - Bowel movement irregularity [Unknown]
  - Drug ineffective [Unknown]
  - Laboratory test abnormal [Unknown]
